FAERS Safety Report 7772214-4 (Version None)
Quarter: 2011Q3

REPORT INFORMATION
  Report Type: 
  Country: None (occurrence: None)
  Receive Date: 20110922
  Receipt Date: 20100811
  Transmission Date: 20111222
  Serious: No
  Sender: FDA-Public Use
  Company Number: US-ASTRAZENECA-2007UW21512

PATIENT
  Age: 53 Year
  Sex: Female
  Weight: 78.5 kg

DRUGS (16)
  1. PAROXETINE HYDROCHLORIDE [Concomitant]
     Indication: DEPRESSION
     Dosage: 25 MG SA TAB N/F TAKE ONE TABLET BY MOUTH ACTIVE ONCE A DAY
     Dates: start: 20060222
  2. LISINOPRIL [Concomitant]
     Indication: BLOOD PRESSURE
     Dates: start: 20060222
  3. HYDROCHLOROTHIAZIDE [Concomitant]
     Indication: BLOOD PRESSURE
     Dosage: 25 MG TAB TAKE ONE-HALF TABLET ONCE A DAY
     Dates: start: 20060222
  4. LISINOPRIL [Concomitant]
     Indication: CARDIAC DISORDER
     Dates: start: 20060222
  5. PAXIL [Concomitant]
     Indication: DEPRESSION
     Dosage: 12.5-25 MG
     Dates: start: 20030829
  6. SEROQUEL [Suspect]
     Indication: DEPRESSION
     Dosage: 15 MG TO 150 MG
     Route: 048
     Dates: start: 19980101, end: 19981201
  7. WELLBUTRIN [Concomitant]
     Dates: start: 20050525
  8. REMERON [Concomitant]
  9. SEROQUEL [Suspect]
     Dosage: 25-50 MG
     Route: 048
     Dates: start: 19980324
  10. SEROQUEL [Suspect]
     Route: 048
     Dates: start: 19991103, end: 20030716
  11. ZOLOFT [Concomitant]
     Dates: start: 19980324
  12. RISPERDAL [Concomitant]
     Dates: start: 19980324
  13. NIACIN [Concomitant]
     Dates: start: 20050908
  14. HALDOL [Concomitant]
     Dates: start: 19980324
  15. GEODON [Concomitant]
     Dosage: 20 MG TO 40 MG
     Dates: start: 20010101
  16. ABILIFY [Concomitant]
     Dates: start: 20030501

REACTIONS (6)
  - DIABETES MELLITUS [None]
  - TYPE 2 DIABETES MELLITUS [None]
  - LOSS OF CONSCIOUSNESS [None]
  - OBESITY [None]
  - DIABETIC COMPLICATION [None]
  - CONFUSIONAL STATE [None]
